FAERS Safety Report 8920435 (Version 1)
Quarter: 2012Q4

REPORT INFORMATION
  Report Type: 
  Country: DK (occurrence: DE)
  Receive Date: 20121121
  Receipt Date: 20121121
  Transmission Date: 20130627
  Serious: Yes (Congenital Anomaly, Other)
  Sender: FDA-Public Use
  Company Number: DE-FRI-1000040586

PATIENT
  Age: 0 Year
  Sex: Female
  Weight: 2.43 kg

DRUGS (1)
  1. CITALOPRAM [Suspect]
     Indication: DEPRESSION
     Dosage: 5 mg
     Route: 064
     Dates: start: 20100828, end: 20110502

REACTIONS (5)
  - Talipes [Recovering/Resolving]
  - Foot deformity [Recovering/Resolving]
  - Ventricular extrasystoles [Recovered/Resolved]
  - Premature baby [Recovered/Resolved]
  - Foetal exposure during pregnancy [Recovered/Resolved]
